FAERS Safety Report 16057282 (Version 2)
Quarter: 2019Q2

REPORT INFORMATION
  Report Type: Spontaneous
  Country: US (occurrence: US)
  Receive Date: 20190311
  Receipt Date: 20190425
  Transmission Date: 20190711
  Serious: No
  Sender: FDA-Public Use
  Company Number: US-PFIZER INC-2019099428

PATIENT
  Age: 77 Year
  Sex: Female

DRUGS (1)
  1. IBRANCE [Suspect]
     Active Substance: PALBOCICLIB
     Indication: BONE CANCER
     Dosage: UNK

REACTIONS (4)
  - Hypoacusis [Unknown]
  - Product use in unapproved indication [Unknown]
  - Diarrhoea [Unknown]
  - Malaise [Unknown]
